FAERS Safety Report 8455027-X (Version None)
Quarter: 2012Q2

REPORT INFORMATION
  Report Type: 
  Country: None (occurrence: None)
  Receive Date: 20120621
  Receipt Date: 20120613
  Transmission Date: 20120825
  Serious: Yes (Hospitalization)
  Sender: FDA-Public Use
  Company Number: FR-BAYER-2012-059307

PATIENT
  Age: 67 Year
  Sex: Female

DRUGS (10)
  1. CUBICIN [Suspect]
     Dosage: UNK
     Dates: start: 20111205, end: 20111212
  2. TEMAZEPAM [Suspect]
     Dosage: UNK
     Route: 048
     Dates: start: 20111209, end: 20111220
  3. OXACILLIN [Concomitant]
  4. LEVOFLOXACIN [Suspect]
     Dosage: UNK
     Route: 048
     Dates: start: 20111215, end: 20111221
  5. TAZOBACTAM [Suspect]
     Dosage: UNK
     Dates: start: 20111205, end: 20111212
  6. CIPROFLOXACIN HYDROCHLORIDE [Suspect]
     Dosage: UNK
     Dates: start: 20111208, end: 20111212
  7. RIFADIN [Suspect]
     Dosage: 600 MG, BID
     Route: 048
     Dates: start: 20111212, end: 20111215
  8. CLINDAMYCIN HCL [Suspect]
     Dosage: 2 DF, TID
     Route: 048
     Dates: start: 20111212, end: 20111221
  9. FLAGYL [Concomitant]
  10. AMIKACIN [Suspect]
     Dosage: UNK
     Dates: start: 20111205, end: 20111208

REACTIONS (2)
  - RASH [None]
  - TOXIC SKIN ERUPTION [None]
